FAERS Safety Report 4707171-8 (Version None)
Quarter: 2005Q3

REPORT INFORMATION
  Report Type: 
  Country: None (occurrence: None)
  Receive Date: 20050706
  Receipt Date: 20050622
  Transmission Date: 20060218
  Serious: Yes (Other)
  Sender: FDA-Public Use
  Company Number: DE-JNJFOC-20040400143

PATIENT
  Sex: Female
  Weight: 62 kg

DRUGS (2)
  1. REMICADE [Suspect]
     Indication: RHEUMATOID ARTHRITIS
     Route: 042
  2. CALCIMAGON D3 [Concomitant]
     Route: 049

REACTIONS (4)
  - FATIGUE [None]
  - HEADACHE [None]
  - HYPERTENSIVE CRISIS [None]
  - PITUITARY TUMOUR BENIGN [None]
